FAERS Safety Report 8276722-1 (Version None)
Quarter: 2012Q2

REPORT INFORMATION
  Report Type: 
  Country: None (occurrence: None)
  Receive Date: 20120412
  Receipt Date: 20120412
  Transmission Date: 20120825
  Serious: No
  Sender: FDA-Public Use
  Company Number: None

PATIENT
  Age: 37 Year
  Sex: Female
  Weight: 57.606 kg

DRUGS (2)
  1. SAVELLA [Suspect]
     Indication: EHLERS-DANLOS SYNDROME
     Dates: start: 20100109, end: 20120404
  2. MAXALT-MLT [Concomitant]
     Indication: MIGRAINE
     Dates: start: 20110711, end: 20120102

REACTIONS (16)
  - ANGINA PECTORIS [None]
  - HYPERHIDROSIS [None]
  - FLUSHING [None]
  - APHASIA [None]
  - ASTHENIA [None]
  - PALPITATIONS [None]
  - TREMOR [None]
  - SKIN DISCOLOURATION [None]
  - MALAISE [None]
  - HYPERTENSION [None]
  - MUSCLE SPASMS [None]
  - COORDINATION ABNORMAL [None]
  - MIGRAINE [None]
  - TACHYCARDIA [None]
  - TACHYPNOEA [None]
  - DYSPNOEA [None]
